FAERS Safety Report 9822075 (Version 2)
Quarter: 2014Q1

REPORT INFORMATION
  Report Type: Spontaneous
  Country: IT (occurrence: IT)
  Receive Date: 20140116
  Receipt Date: 20140206
  Transmission Date: 20141002
  Serious: Yes (Hospitalization)
  Sender: FDA-Public Use
  Company Number: PHHY2014IT001690

PATIENT
  Sex: Male

DRUGS (10)
  1. AMIKACIN [Suspect]
     Indication: SEPSIS
     Dosage: 10 MG/KG, Q12H
  2. AMIKACIN [Suspect]
     Indication: PNEUMONIA
  3. AMPICILLIN [Suspect]
     Indication: SEPSIS
     Dosage: 25 MG/KG, Q8H
  4. AMPICILLIN [Suspect]
     Indication: PNEUMONIA
  5. BECLOMETHASONE [Suspect]
     Dosage: 0.4 MG, Q6H
     Route: 055
  6. CEFTAZIDIME [Suspect]
  7. TEICOPLANIN [Suspect]
  8. AMOXICILLIN-CLAVULANIC ACID [Suspect]
     Dosage: 50 MG/KG, Q12H
  9. SALBUTAMOL [Concomitant]
     Indication: PULMONARY OEDEMA
  10. NITRIC OXIDE [Concomitant]
     Route: 055

REACTIONS (10)
  - Candida pneumonia [Recovered/Resolved]
  - Respiratory moniliasis [Recovered/Resolved]
  - Lung infiltration [Recovered/Resolved]
  - Lung consolidation [Recovered/Resolved]
  - Increased bronchial secretion [Recovered/Resolved]
  - Cough [Recovered/Resolved]
  - Respiratory gas exchange disorder [Recovered/Resolved]
  - Pneumonia klebsiella [Recovered/Resolved]
  - Candida infection [Recovered/Resolved]
  - Drug ineffective [Recovered/Resolved]
